FAERS Safety Report 5773201-8 (Version None)
Quarter: 2008Q2

REPORT INFORMATION
  Report Type: 
  Country: None (occurrence: None)
  Receive Date: 20080613
  Receipt Date: 20080613
  Transmission Date: 20081010
  Serious: Yes (Hospitalization)
  Sender: FDA-Public Use
  Company Number: None

PATIENT
  Age: 81 Year
  Sex: Female
  Weight: 56.6996 kg

DRUGS (1)
  1. PREGABALIN 50MG UNK [Suspect]
     Indication: NEUROPATHY PERIPHERAL
     Dosage: 50MG 3 TIMES DAILY PO/APPROX 2-DAYS 6-DOSES
     Route: 048
     Dates: start: 20070615, end: 20070617

REACTIONS (2)
  - COMA [None]
  - MENTAL STATUS CHANGES [None]
